FAERS Safety Report 23820131 (Version 1)
Quarter: 2024Q2

REPORT INFORMATION
  Report Type: Spontaneous
  Country: TN (occurrence: TN)
  Receive Date: 20240506
  Receipt Date: 20240506
  Transmission Date: 20240716
  Serious: Yes (Death, Life-Threatening, Hospitalization, Other)
  Sender: FDA-Public Use
  Company Number: TN-MLMSERVICE-20240419-PI034379-00101-1

PATIENT
  Age: 42 Year
  Sex: Female

DRUGS (1)
  1. CISPLATIN [Suspect]
     Active Substance: CISPLATIN
     Indication: Cervix carcinoma stage III
     Dosage: 4 CYCLICAL

REACTIONS (9)
  - Peripheral artery thrombosis [Unknown]
  - Female genital tract fistula [Unknown]
  - Localised infection [Unknown]
  - Deep vein thrombosis [Unknown]
  - Urogenital fistula [Unknown]
  - Multiple organ dysfunction syndrome [Fatal]
  - Abdominal infection [Unknown]
  - Necrotising fasciitis [Fatal]
  - Sepsis [Fatal]
